FAERS Safety Report 24581292 (Version 6)
Quarter: 2025Q4

REPORT INFORMATION
  Report Type: Spontaneous
  Country: US (occurrence: US)
  Receive Date: 20241105
  Receipt Date: 20251210
  Transmission Date: 20260118
  Serious: Yes (Other)
  Sender: ROCHE
  Company Number: US-ROCHE-10000122595

PATIENT
  Age: 45 Year
  Sex: Male
  Weight: 128.82 kg

DRUGS (2)
  1. HEMLIBRA [Suspect]
     Active Substance: EMICIZUMAB-KXWH
     Indication: Factor VIII deficiency
     Dosage: STRENGTH: 105MG/0.7ML
     Route: 058
     Dates: start: 202303
  2. HEMLIBRA [Suspect]
     Active Substance: EMICIZUMAB-KXWH
     Indication: Factor VIII deficiency
     Route: 058
     Dates: start: 202302

REACTIONS (5)
  - Renal haemorrhage [Not Recovered/Not Resolved]
  - Mouth haemorrhage [Unknown]
  - Off label use [Unknown]
  - Haemorrhage [Unknown]
  - Blood urine present [Unknown]

NARRATIVE: CASE EVENT DATE: 20241024
